FAERS Safety Report 6637086-X (Version None)
Quarter: 2010Q1

REPORT INFORMATION
  Report Type: 
  Country: None (occurrence: None)
  Receive Date: 20100311
  Receipt Date: 20100303
  Transmission Date: 20100710
  Serious: Yes (Death, Life-Threatening)
  Sender: FDA-Public Use
  Company Number: VISP-NO-1003S-0121

PATIENT
  Age: 15 Day
  Sex: Male
  Weight: 4 kg

DRUGS (4)
  1. VISIPAQUE [Suspect]
     Indication: LYMPHOCELE
     Dosage: 20 ML, SINGLE DOSE, BODY CAVITY
     Dates: start: 20100216, end: 20100216
  2. HETASTARCH (VOLUVEN) [Concomitant]
  3. ALBUMIN (HUMAN) [Concomitant]
  4. CEFAZOLIN [Concomitant]

REACTIONS (16)
  - ACUTE PULMONARY OEDEMA [None]
  - ANURIA [None]
  - CARDIAC FIBRILLATION [None]
  - CARDIO-RESPIRATORY ARREST [None]
  - CARDIOGENIC SHOCK [None]
  - COAGULATION TEST ABNORMAL [None]
  - COMA [None]
  - DISSEMINATED INTRAVASCULAR COAGULATION [None]
  - DRUG TOXICITY [None]
  - HAEMODYNAMIC INSTABILITY [None]
  - HEPATOMEGALY [None]
  - LACTIC ACIDOSIS [None]
  - LEFT VENTRICULAR DYSFUNCTION [None]
  - MYDRIASIS [None]
  - OXYGEN SATURATION DECREASED [None]
  - RIGHT VENTRICULAR DYSFUNCTION [None]
